FAERS Safety Report 7830310 (Version 2)
Quarter: 2014Q1

REPORT INFORMATION
  Report Type: Spontaneous
  Country: US (occurrence: US)
  Receive Date: 20110226
  Receipt Date: 20140205
  Transmission Date: 20141002
  Serious: No
  Sender: FDA-Public Use
  Company Number: US-ALLERGAN-1014008US

PATIENT
  Sex: Female

DRUGS (4)
  1. BOTOX COSMETIC [Suspect]
     Indication: SKIN WRINKLING
     Dosage: UNK
     Route: 030
     Dates: start: 20101015, end: 20101015
  2. BOTOX COSMETIC [Suspect]
     Dosage: UNK
     Dates: start: 201304, end: 201304
  3. JUVEDERM [Concomitant]
     Indication: SKIN WRINKLING
     Dosage: UNK
     Dates: start: 20101015, end: 20101015
  4. BELLATERO [Concomitant]
     Indication: PRODUCT USED FOR UNKNOWN INDICATION

REACTIONS (7)
  - Facial paresis [Not Recovered/Not Resolved]
  - Speech disorder [Not Recovered/Not Resolved]
  - Transient ischaemic attack [Unknown]
  - Joint stiffness [Unknown]
  - Laryngitis [Unknown]
  - Dysarthria [Unknown]
  - Vision blurred [Unknown]
